FAERS Safety Report 8225369-1 (Version None)
Quarter: 2012Q1

REPORT INFORMATION
  Report Type: 
  Country: None (occurrence: None)
  Receive Date: 20120321
  Receipt Date: 20120307
  Transmission Date: 20120608
  Serious: Yes (Hospitalization)
  Sender: FDA-Public Use
  Company Number: JP-EISAI INC-E2020-10440-SPO-JP

PATIENT
  Sex: Male

DRUGS (4)
  1. ARICEPT [Suspect]
     Route: 048
     Dates: start: 20120301
  2. ARICEPT [Suspect]
     Route: 048
  3. NORVASC [Concomitant]
     Dosage: UNKNOWN
     Route: 048
  4. ESTAZOLAM [Concomitant]
     Dosage: UNKNOWN
     Route: 048

REACTIONS (1)
  - ALTERED STATE OF CONSCIOUSNESS [None]
